FAERS Safety Report 9162913 (Version 1)
Quarter: 2013Q1

REPORT INFORMATION
  Report Type: Spontaneous
  Country: PL (occurrence: None)
  Receive Date: 20130214
  Receipt Date: 20130214
  Transmission Date: 20140127
  Serious: Yes (Hospitalization)
  Sender: FDA-Public Use
  Company Number: 0235907

PATIENT
  Age: 50 Year
  Sex: Male

DRUGS (2)
  1. TACHOSIL [Suspect]
     Indication: HAEMOSTASIS
  2. VIAGRA (SILDENAFIL CITRATE) [Concomitant]

REACTIONS (2)
  - Procedural haemorrhage [None]
  - Intestinal obstruction [None]
